FAERS Safety Report 9713637 (Version 1)
Quarter: 2013Q4

REPORT INFORMATION
  Report Type: Spontaneous
  Country: US (occurrence: US)
  Receive Date: 20131126
  Receipt Date: 20131126
  Transmission Date: 20140711
  Serious: No
  Sender: FDA-Public Use
  Company Number: US-009507513-1311USA009098

PATIENT
  Age: 3 Year
  Sex: Female

DRUGS (1)
  1. CLARITIN ORAL SOLUTION [Suspect]
     Indication: HYPERSENSITIVITY
     Dosage: 20 MG, ONCE
     Route: 048
     Dates: start: 20131115

REACTIONS (2)
  - Overdose [Unknown]
  - Accidental exposure to product by child [Unknown]
